FAERS Safety Report 17550426 (Version 1)
Quarter: 2020Q1

REPORT INFORMATION
  Report Type: Spontaneous
  Country: US (occurrence: US)
  Receive Date: 20200317
  Receipt Date: 20200317
  Transmission Date: 20200409
  Serious: No
  Sender: FDA-Public Use
  Company Number: US-TEVA-2020-US-1200034

PATIENT
  Age: 74 Year
  Sex: Female
  Weight: 39.15 kg

DRUGS (12)
  1. NORCO [Concomitant]
     Active Substance: ACETAMINOPHEN\HYDROCODONE BITARTRATE
  2. VITA D3 [Concomitant]
  3. BIOTIN [Concomitant]
     Active Substance: BIOTIN
  4. PREDNISONE. [Suspect]
     Active Substance: PREDNISONE
     Route: 065
  5. CULTURELLE [Concomitant]
     Active Substance: LACTOBACILLUS RHAMNOSUS
  6. VITAMIN B COMPLEX [Concomitant]
     Active Substance: CYANOCOBALAMIN\DEXPANTHENOL\NIACINAMIDE\PYRIDOXINE HYDROCHLORIDE\RIBOFLAVIN 5^-PHOSPHATE SODIUM\THIAMINE HYDROCHLORIDE\VITAMIN B COMPLEX
  7. LUTEIN [Concomitant]
     Active Substance: LUTEIN
  8. MAGNESIUM [Concomitant]
     Active Substance: MAGNESIUM
  9. FLAXSEED [Concomitant]
     Active Substance: FLAX SEED
  10. CLONIDINE. [Concomitant]
     Active Substance: CLONIDINE
  11. VITAMIN E [Concomitant]
     Active Substance: .ALPHA.-TOCOPHEROL
  12. BYSTOLIC [Concomitant]
     Active Substance: NEBIVOLOL HYDROCHLORIDE

REACTIONS (2)
  - Nervousness [Unknown]
  - Feeling abnormal [Unknown]
